FAERS Safety Report 5141985-8 (Version None)
Quarter: 2006Q4

REPORT INFORMATION
  Report Type: 
  Country: None (occurrence: None)
  Receive Date: 20061102
  Receipt Date: 20060919
  Transmission Date: 20070319
  Serious: Yes (Hospitalization)
  Sender: FDA-Public Use
  Company Number: JP-SP-2006-02512

PATIENT
  Age: 71 Year
  Sex: Male

DRUGS (2)
  1. IMMUCYST [Suspect]
     Indication: BLADDER CANCER
     Route: 043
     Dates: start: 20060807, end: 20060911
  2. IMMUCYST [Suspect]
     Route: 043
     Dates: start: 20060807, end: 20060911

REACTIONS (3)
  - ARTHRALGIA [None]
  - JOINT SWELLING [None]
  - PROSTATITIS [None]
